FAERS Safety Report 7940665-0 (Version None)
Quarter: 2011Q4

REPORT INFORMATION
  Report Type: 
  Country: None (occurrence: None)
  Receive Date: 20111114
  Receipt Date: 20110426
  Transmission Date: 20120403
  Serious: Yes (Hospitalization)
  Sender: FDA-Public Use
  Company Number: 2011S1000187

PATIENT
  Age: 51 Year
  Weight: 156.04 kg

DRUGS (8)
  1. LANTUS [Concomitant]
  2. IBUPROFEN [Concomitant]
  3. PRINZIDE /00977901/ [Concomitant]
  4. CUBICIN [Suspect]
     Indication: CELLULITIS
     Dosage: IV
     Route: 042
     Dates: start: 20110204, end: 20110216
  5. CUBICIN [Suspect]
     Indication: OSTEOMYELITIS
     Dosage: IV
     Route: 042
     Dates: start: 20110204, end: 20110216
  6. ASPIRIN [Concomitant]
  7. HUMALOG [Concomitant]
  8. VANCOMYCIN [Concomitant]

REACTIONS (1)
  - BLOOD CREATINE PHOSPHOKINASE INCREASED [None]
